FAERS Safety Report 7092469-1 (Version None)
Quarter: 2010Q4

REPORT INFORMATION
  Report Type: 
  Country: None (occurrence: None)
  Receive Date: 20101108
  Receipt Date: 20101108
  Transmission Date: 20110411
  Serious: Yes (Life-Threatening, Disabling, Other)
  Sender: FDA-Public Use
  Company Number: None

PATIENT
  Sex: Female
  Weight: 102.0593 kg

DRUGS (2)
  1. LEVOTHYROXINE SODIUM [Suspect]
     Indication: HYPOTHYROIDISM
     Dosage: .025MG (25MCG) ONE X/ DAILY ORAL
     Route: 048
     Dates: start: 20090601, end: 20090701
  2. LEVOTHYROXINE SODIUM [Suspect]
     Indication: HYPOTHYROIDISM
     Dosage: .025MG (25MCG) ONE X/ DAILY ORAL
     Route: 048
     Dates: start: 20100801

REACTIONS (12)
  - ASTHMA [None]
  - BODY TEMPERATURE DECREASED [None]
  - CYANOSIS [None]
  - DIPLOPIA [None]
  - DYSPHAGIA [None]
  - DYSURIA [None]
  - GASTROOESOPHAGEAL REFLUX DISEASE [None]
  - HEART RATE DECREASED [None]
  - HYPOAESTHESIA ORAL [None]
  - LETHARGY [None]
  - THYROID FUNCTION TEST ABNORMAL [None]
  - WEIGHT INCREASED [None]
